FAERS Safety Report 10883119 (Version 1)
Quarter: 2015Q1

REPORT INFORMATION
  Report Type: Spontaneous
  Country: US (occurrence: US)
  Receive Date: 20150303
  Receipt Date: 20150303
  Transmission Date: 20150721
  Serious: No
  Sender: FDA-Public Use
  Company Number: US-SHIRE-US201501764

PATIENT
  Age: 9 Year
  Sex: Male
  Weight: 33.11 kg

DRUGS (2)
  1. MOTRIN [Concomitant]
     Active Substance: IBUPROFEN
     Indication: ADENOIDAL DISORDER
     Dosage: 400 MG, UNKNOWN
     Route: 065
  2. VYVANSE [Suspect]
     Active Substance: LISDEXAMFETAMINE DIMESYLATE
     Indication: ATTENTION DEFICIT/HYPERACTIVITY DISORDER
     Dosage: 20 MG, 1X/DAY:QD
     Route: 048

REACTIONS (3)
  - Social avoidant behaviour [Unknown]
  - Feeling jittery [Unknown]
  - Depressed mood [Unknown]
